FAERS Safety Report 23697554 (Version 1)
Quarter: 2024Q2

REPORT INFORMATION
  Report Type: Spontaneous
  Country: US (occurrence: US)
  Receive Date: 20240402
  Receipt Date: 20240402
  Transmission Date: 20240716
  Serious: No
  Sender: FDA-Public Use
  Company Number: US-GRANULES-US-2024GRASPO00086

PATIENT
  Age: 76 Year
  Sex: Male
  Weight: 220 kg

DRUGS (3)
  1. METFORMIN HYDROCHLORIDE [Suspect]
     Active Substance: METFORMIN HYDROCHLORIDE
     Indication: Glucose tolerance impaired
     Route: 048
  2. METFORMIN HYDROCHLORIDE [Suspect]
     Active Substance: METFORMIN HYDROCHLORIDE
     Route: 048
  3. METFORMIN HYDROCHLORIDE [Suspect]
     Active Substance: METFORMIN HYDROCHLORIDE
     Route: 048

REACTIONS (1)
  - Product residue present [Unknown]
